FAERS Safety Report 15843378 (Version 2)
Quarter: 2019Q1

REPORT INFORMATION
  Report Type: Spontaneous
  Country: US (occurrence: US)
  Receive Date: 20190118
  Receipt Date: 20190125
  Transmission Date: 20190417
  Serious: Yes (Hospitalization)
  Sender: FDA-Public Use
  Company Number: US-ALLERGAN-1901982US

PATIENT
  Sex: Female

DRUGS (1)
  1. ARMOUR THYROID [Suspect]
     Active Substance: THYROID, PORCINE
     Indication: HYPOTHYROIDISM
     Dosage: 180 MG, QD
     Route: 048
     Dates: end: 20190101

REACTIONS (12)
  - Urticaria [Unknown]
  - Blood parathyroid hormone abnormal [Unknown]
  - Dysarthria [Unknown]
  - Product storage error [Unknown]
  - Loss of consciousness [Recovered/Resolved]
  - Nausea [Unknown]
  - Product dose omission [Unknown]
  - Malaise [Not Recovered/Not Resolved]
  - Dizziness [Unknown]
  - Neck pain [Recovered/Resolved]
  - Lymphadenopathy [Recovered/Resolved]
  - Diarrhoea [Unknown]

NARRATIVE: CASE EVENT DATE: 201806
